FAERS Safety Report 6623972-3 (Version None)
Quarter: 2010Q1

REPORT INFORMATION
  Report Type: 
  Country: None (occurrence: None)
  Receive Date: 20100304
  Receipt Date: 20100301
  Transmission Date: 20100710
  Serious: Yes (Other)
  Sender: FDA-Public Use
  Company Number: TRP_06812_2010

PATIENT
  Age: 40 Year
  Sex: Male

DRUGS (2)
  1. RIBAVIRIN (RIBAVIRIN) [Suspect]
     Indication: HEPATITIS C
     Dosage: (DF)
  2. PEGINTERFERON ALFA-2B (PEGYLATED INTERFERON ALFA-2B) [Suspect]
     Indication: HEPATITIS C
     Dosage: (DF)

REACTIONS (5)
  - ABSCESS [None]
  - ACANTHOSIS [None]
  - ONYCHOLYSIS [None]
  - PARAKERATOSIS [None]
  - PSORIASIS [None]
